FAERS Safety Report 9026619 (Version 1)
Quarter: 2013Q1

REPORT INFORMATION
  Report Type: Spontaneous
  Country: US (occurrence: US)
  Receive Date: 20130123
  Receipt Date: 20130123
  Transmission Date: 20140127
  Serious: Yes (Hospitalization, Other)
  Sender: FDA-Public Use
  Company Number: PHEH2013US001604

PATIENT
  Age: 77 Year
  Sex: Male

DRUGS (7)
  1. GLEEVEC [Suspect]
     Indication: CHRONIC MYELOID LEUKAEMIA
     Dosage: 400 MG, QD
     Route: 048
     Dates: start: 200608, end: 20130116
  2. AMLODIPINE [Concomitant]
  3. CLONIDINE [Concomitant]
  4. ALLOPURINOL [Concomitant]
  5. LEVOTHYROXIN [Concomitant]
  6. PIROXICAM [Concomitant]
     Dosage: UNK UKN, UNK
  7. CHEMOTHERAPEUTICS [Suspect]

REACTIONS (3)
  - Gastrointestinal haemorrhage [Not Recovered/Not Resolved]
  - Lung neoplasm malignant [Not Recovered/Not Resolved]
  - Second primary malignancy [Not Recovered/Not Resolved]
